FAERS Safety Report 18716143 (Version 1)
Quarter: 2021Q1

REPORT INFORMATION
  Report Type: Spontaneous
  Country: US (occurrence: US)
  Receive Date: 20210107
  Receipt Date: 20210107
  Transmission Date: 20210419
  Serious: No
  Sender: FDA-Public Use
  Company Number: None

PATIENT
  Age: 71 Year
  Sex: Male

DRUGS (1)
  1. BAMLANIVIMAB. [Suspect]
     Active Substance: BAMLANIVIMAB
     Indication: COVID-19
     Dosage: ?          OTHER FREQUENCY:ONE TIME;?
     Route: 042
     Dates: start: 20210106, end: 20210106

REACTIONS (4)
  - Oxygen saturation decreased [None]
  - Heart rate increased [None]
  - Pyrexia [None]
  - Respiratory rate decreased [None]

NARRATIVE: CASE EVENT DATE: 20210106
